FAERS Safety Report 16721926 (Version 1)
Quarter: 2019Q3

REPORT INFORMATION
  Report Type: Spontaneous
  Country: US (occurrence: US)
  Receive Date: 20190820
  Receipt Date: 20190820
  Transmission Date: 20191005
  Serious: Yes (Other)
  Sender: FDA-Public Use
  Company Number: US-TEVA-2019-US-1093600

PATIENT
  Sex: Male

DRUGS (14)
  1. NEFAZODONE [Concomitant]
     Active Substance: NEFAZODONE
     Indication: SCHIZOAFFECTIVE DISORDER
     Route: 065
  2. OLANZAPINE. [Suspect]
     Active Substance: OLANZAPINE
     Indication: SCHIZOAFFECTIVE DISORDER
     Dosage: 7.5 MILLIGRAM DAILY;
     Route: 065
     Dates: start: 2011
  3. OLANZAPINE. [Suspect]
     Active Substance: OLANZAPINE
     Dosage: LATER, IN 2013, THE DOSAGE WAS INCREASED TO 7.5MG/DAY
     Route: 065
  4. LURASIDONE [Suspect]
     Active Substance: LURASIDONE
     Indication: SCHIZOAFFECTIVE DISORDER
     Dosage: 40 MILLIGRAM DAILY;
     Route: 065
  5. ZIPRASIDONE. [Suspect]
     Active Substance: ZIPRASIDONE
     Indication: SCHIZOAFFECTIVE DISORDER
     Route: 065
  6. CITALOPRAM [Concomitant]
     Active Substance: CITALOPRAM HYDROBROMIDE
     Indication: DEPRESSION
     Dosage: 10 MILLIGRAM DAILY;
     Route: 065
  7. OLANZAPINE. [Suspect]
     Active Substance: OLANZAPINE
     Route: 065
  8. CITALOPRAM [Concomitant]
     Active Substance: CITALOPRAM HYDROBROMIDE
     Route: 065
  9. VENLAFAXINE [Suspect]
     Active Substance: VENLAFAXINE HYDROCHLORIDE
     Indication: DEPRESSION
     Dosage: 75 MILLIGRAM DAILY;
     Route: 065
  10. ASENAPINE. [Suspect]
     Active Substance: ASENAPINE
     Indication: SCHIZOAFFECTIVE DISORDER
     Dosage: 5 MILLIGRAM DAILY;
     Route: 065
  11. CITALOPRAM [Concomitant]
     Active Substance: CITALOPRAM HYDROBROMIDE
     Route: 065
  12. RISPERIDONE. [Suspect]
     Active Substance: RISPERIDONE
     Indication: SCHIZOAFFECTIVE DISORDER
     Dosage: FOR 2-3 YEARS
     Route: 065
  13. OLANZAPINE. [Suspect]
     Active Substance: OLANZAPINE
     Route: 065
     Dates: start: 2013
  14. ASENAPINE. [Suspect]
     Active Substance: ASENAPINE
     Route: 065

REACTIONS (2)
  - Cardiometabolic syndrome [Recovered/Resolved]
  - Treatment failure [Unknown]
